FAERS Safety Report 5927266-0 (Version None)
Quarter: 2008Q4

REPORT INFORMATION
  Report Type: 
  Country: None (occurrence: None)
  Receive Date: 20081022
  Receipt Date: 20081014
  Transmission Date: 20090506
  Serious: Yes (Hospitalization)
  Sender: FDA-Public Use
  Company Number: JP-MERCK-0810USA03378

PATIENT
  Age: 24 Year
  Sex: Female
  Weight: 65 kg

DRUGS (10)
  1. COZAAR [Suspect]
     Route: 048
     Dates: start: 20070517, end: 20071229
  2. COZAAR [Suspect]
     Route: 048
     Dates: start: 20080228, end: 20080313
  3. DAPSONE [Suspect]
     Route: 048
     Dates: start: 20071129, end: 20071226
  4. [THERAPY UNSPECIFIED] [Concomitant]
     Indication: IGA NEPHROPATHY
     Route: 065
  5. ALFAROL [Concomitant]
     Route: 048
  6. MUCOSTA [Concomitant]
     Route: 048
  7. PREDNISOLONE [Concomitant]
     Route: 048
  8. SIMVASTATIN [Concomitant]
     Route: 048
  9. FOSAMAX [Concomitant]
     Route: 048
  10. EPADEL S [Concomitant]
     Route: 048

REACTIONS (4)
  - BLISTER [None]
  - ERYTHEMA [None]
  - LYMPHOCYTE STIMULATION TEST POSITIVE [None]
  - PRURITUS [None]
